FAERS Safety Report 9152829 (Version 2)
Quarter: 2013Q2

REPORT INFORMATION
  Report Type: Report from Study
  Country: US (occurrence: US)
  Receive Date: 20130309
  Receipt Date: 20130501
  Transmission Date: 20140414
  Serious: Yes (Other)
  Sender: FDA-Public Use
  Company Number: US-US-EMD SERONO, INC.-7197438

PATIENT
  Age: 49 Year
  Sex: Female

DRUGS (2)
  1. REBIF [Suspect]
     Indication: MULTIPLE SCLEROSIS
     Route: 058
     Dates: start: 20120817
  2. ADVIL                              /00109201/ [Concomitant]
     Indication: PREMEDICATION

REACTIONS (2)
  - Optic neuritis [Recovering/Resolving]
  - Injection site injury [Unknown]
